FAERS Safety Report 19308854 (Version 1)
Quarter: 2021Q2

REPORT INFORMATION
  Report Type: Spontaneous
  Country: US (occurrence: US)
  Receive Date: 20210525
  Receipt Date: 20210525
  Transmission Date: 20210717
  Serious: No
  Sender: FDA-Public Use
  Company Number: US-AMGEN-USASP2021078656

PATIENT
  Age: 70 Year
  Sex: Male

DRUGS (3)
  1. MVASI [Suspect]
     Active Substance: BEVACIZUMAB-AWWB
     Dosage: 100 MILLIGRAM
     Route: 065
  2. MVASI [Suspect]
     Active Substance: BEVACIZUMAB-AWWB
     Dosage: 400 MILLIGRAM
     Route: 065
  3. MVASI [Suspect]
     Active Substance: BEVACIZUMAB-AWWB
     Indication: HEPATOCELLULAR CARCINOMA
     Dosage: 1700 MILLIGRAM
     Route: 065

REACTIONS (2)
  - Accidental exposure to product [Unknown]
  - Off label use [Unknown]

NARRATIVE: CASE EVENT DATE: 20210519
